FAERS Safety Report 8250708-5 (Version None)
Quarter: 2012Q2

REPORT INFORMATION
  Report Type: 
  Country: None (occurrence: None)
  Receive Date: 20120402
  Receipt Date: 20120322
  Transmission Date: 20120825
  Serious: Yes (Other)
  Sender: FDA-Public Use
  Company Number: US-ASTRAZENECA-2010SE60051

PATIENT
  Age: 62 Year
  Sex: Female

DRUGS (2)
  1. NEXIUM [Suspect]
     Route: 048
  2. PRILOSEC [Suspect]
     Route: 048

REACTIONS (6)
  - CARDIAC FAILURE [None]
  - CARDIAC DISORDER [None]
  - DYSPEPSIA [None]
  - BREAST CANCER [None]
  - NAUSEA [None]
  - DRUG INEFFECTIVE [None]
